FAERS Safety Report 21745203 (Version 1)
Quarter: 2022Q4

REPORT INFORMATION
  Report Type: Other
  Country: CA (occurrence: CA)
  Receive Date: 20221219
  Receipt Date: 20221219
  Transmission Date: 20230112
  Serious: Yes (Life-Threatening, Other)
  Sender: FDA-Public Use
  Company Number: CA-APOTEX-2022AP016657

PATIENT
  Age: 58 Year
  Sex: Male

DRUGS (1)
  1. AMOXICILLIN\CLAVULANATE POTASSIUM [Suspect]
     Active Substance: AMOXICILLIN\CLAVULANATE POTASSIUM
     Indication: Tooth infection
     Dosage: 1 DOSAGE FORM, SINGLE
     Route: 048

REACTIONS (7)
  - Pharyngeal swelling [Unknown]
  - Feeling hot [Unknown]
  - Productive cough [Unknown]
  - Pruritus [Unknown]
  - Swelling face [Unknown]
  - Diarrhoea [Unknown]
  - Vomiting [Unknown]
